FAERS Safety Report 4708362-2 (Version None)
Quarter: 2005Q3

REPORT INFORMATION
  Report Type: 
  Country: None (occurrence: None)
  Receive Date: 20050707
  Receipt Date: 20050530
  Transmission Date: 20060218
  Serious: Yes (Other)
  Sender: FDA-Public Use
  Company Number: SE-ROCHE-406348

PATIENT
  Age: 21 Year
  Sex: Female

DRUGS (3)
  1. ROACCUTAN [Suspect]
     Indication: ACNE
     Route: 048
     Dates: start: 20040419, end: 20040524
  2. ROACCUTAN [Suspect]
     Route: 048
     Dates: end: 20041108
  3. ROACCUTAN [Suspect]
     Route: 048
     Dates: start: 20041115, end: 20041215

REACTIONS (9)
  - ANXIETY [None]
  - CHILLS [None]
  - CONVULSION [None]
  - DAYDREAMING [None]
  - DISCOMFORT [None]
  - DRY SKIN [None]
  - HYPERHIDROSIS [None]
  - LIP DRY [None]
  - RASH MACULAR [None]
